FAERS Safety Report 22941896 (Version 3)
Quarter: 2023Q4

REPORT INFORMATION
  Report Type: Other
  Country: US (occurrence: None)
  Receive Date: 20230914
  Receipt Date: 20231102
  Transmission Date: 20240110
  Serious: Yes (Other)
  Sender: FDA-Public Use
  Company Number: US-ROCHE-3134252

PATIENT
  Age: 59 Year
  Sex: Male
  Weight: 93.07 kg

DRUGS (8)
  1. OCREVUS [Suspect]
     Active Substance: OCRELIZUMAB
     Indication: Primary progressive multiple sclerosis
     Dosage: DATE OF SERVICE WAS 07/FEB/2020, MOST RECENT INFUSION: 10/MAR/2023
     Route: 042
     Dates: start: 20180801
  2. OCREVUS [Suspect]
     Active Substance: OCRELIZUMAB
     Indication: Secondary progressive multiple sclerosis
  3. PAXLOVID [Suspect]
     Active Substance: NIRMATRELVIR\RITONAVIR
     Indication: COVID-19
     Dosage: 150 X 2-100MG;
     Route: 048
     Dates: end: 20230829
  4. VITAMIN D NOS [Concomitant]
     Active Substance: VITAMIN D NOS
  5. TIZANIDINE [Concomitant]
     Active Substance: TIZANIDINE
  6. LORAZEPAM [Concomitant]
     Active Substance: LORAZEPAM
  7. FLUOXETINE [Concomitant]
     Active Substance: FLUOXETINE HYDROCHLORIDE
  8. TIZANIDINE [Concomitant]
     Active Substance: TIZANIDINE

REACTIONS (26)
  - Optic neuritis [Not Recovered/Not Resolved]
  - Multiple sclerosis [Unknown]
  - Vomiting [Not Recovered/Not Resolved]
  - Diarrhoea [Not Recovered/Not Resolved]
  - Weight decreased [Not Recovered/Not Resolved]
  - Nausea [Not Recovered/Not Resolved]
  - Hyperhidrosis [Not Recovered/Not Resolved]
  - Chills [Not Recovered/Not Resolved]
  - Oral disorder [Recovered/Resolved]
  - Dyskinesia [Not Recovered/Not Resolved]
  - Pain [Not Recovered/Not Resolved]
  - Urinary incontinence [Not Recovered/Not Resolved]
  - Decreased appetite [Not Recovered/Not Resolved]
  - Poor quality sleep [Not Recovered/Not Resolved]
  - Somnolence [Unknown]
  - Feeding disorder [Unknown]
  - Gastroenteritis viral [Unknown]
  - Therapeutic response shortened [Unknown]
  - Muscle twitching [Unknown]
  - Tremor [Unknown]
  - Dyspnoea [Unknown]
  - Cyanosis [Unknown]
  - COVID-19 [Recovered/Resolved]
  - Asthenia [Recovering/Resolving]
  - Headache [Recovering/Resolving]
  - Heart rate decreased [Recovered/Resolved]

NARRATIVE: CASE EVENT DATE: 20220616
